FAERS Safety Report 10984430 (Version 1)
Quarter: 2015Q1

REPORT INFORMATION
  Report Type: Spontaneous
  Country: US (occurrence: None)
  Receive Date: 20150226
  Receipt Date: 20150226
  Transmission Date: 20150721
  Serious: Yes (Other)
  Sender: FDA-Public Use
  Company Number: TPA2013A06487

PATIENT
  Age: 81 Year
  Sex: Male
  Weight: 68 kg

DRUGS (7)
  1. PIOGLITAZONE HYDROCHLORIDE (IOGLITAZONE HYDROCHLORIDE) UNKNOWN [Suspect]
     Active Substance: PIOGLITAZONE HYDROCHLORIDE
     Indication: TYPE 2 DIABETES MELLITUS
     Dates: start: 20090909, end: 20130703
  2. COZAAR (LOSARTAN POTASSIUM) UNKNOWN [Concomitant]
  3. JANUVIA [Concomitant]
     Active Substance: SITAGLIPTIN PHOSPHATE
  4. TILPIX (CHOLINE FENOFIBRATE) UNKNOWN [Concomitant]
  5. CRESTOR [Concomitant]
     Active Substance: ROSUVASTATIN CALCIUM
  6. ZOLOFT (SERTARALINE HYDROCHLORIDE)? [Concomitant]
  7. SYNTHROID [Concomitant]
     Active Substance: LEVOTHYROXINE SODIUM

REACTIONS (3)
  - Haematuria [None]
  - Orchitis [None]
  - Bladder cancer [None]

NARRATIVE: CASE EVENT DATE: 201206
